FAERS Safety Report 4824816-2 (Version None)
Quarter: 2005Q4

REPORT INFORMATION
  Report Type: 
  Country: None (occurrence: None)
  Receive Date: 20051014
  Receipt Date: 20050813
  Transmission Date: 20060501
  Serious: No
  Sender: FDA-Public Use
  Company Number: 2005SP002344

PATIENT
  Age: 60 Year
  Sex: Female
  Weight: 81.6475 kg

DRUGS (7)
  1. LUNESTA [Suspect]
     Indication: INSOMNIA
     Dosage: 3 MG; HS; ORAL
     Route: 048
     Dates: start: 20050701, end: 20050801
  2. AMBIEN [Concomitant]
  3. LODINE [Concomitant]
  4. MULTI-VITAMINS [Concomitant]
  5. OMEGA 3 [Concomitant]
  6. GARLIC [Concomitant]
  7. TOPROL-XL [Concomitant]

REACTIONS (4)
  - DRUG INEFFECTIVE [None]
  - MIDDLE INSOMNIA [None]
  - NIGHTMARE [None]
  - RESTLESSNESS [None]
